FAERS Safety Report 4633899-4 (Version None)
Quarter: 2005Q1

REPORT INFORMATION
  Report Type: 
  Country: None (occurrence: None)
  Receive Date: 20050325
  Receipt Date: 20041230
  Transmission Date: 20050727
  Serious: No
  Sender: FDA-Public Use
  Company Number: USA041287165

PATIENT
  Age: 57 Year
  Sex: Female
  Weight: 58 kg

DRUGS (1)
  1. FORTEO [Suspect]
     Indication: OSTEOPOROSIS
     Dosage: 20 UG
     Dates: start: 20040728

REACTIONS (2)
  - DIZZINESS [None]
  - OVERWEIGHT [None]
